FAERS Safety Report 10423426 (Version 2)
Quarter: 2014Q4

REPORT INFORMATION
  Report Type: Spontaneous
  Country: US (occurrence: None)
  Receive Date: 20140722
  Receipt Date: 20141121
  Transmission Date: 20150528
  Serious: No
  Sender: FDA-Public Use
  Company Number: 163-10004-14062967

PATIENT
  Age: 70 Year
  Sex: Female

DRUGS (9)
  1. OTEZLA [Suspect]
     Active Substance: APREMILAST
     Indication: PSORIATIC ARTHROPATHY
     Dates: start: 20140505, end: 20140630
  2. TEGRETOL (CARBAMAZEPINE) [Concomitant]
  3. VITAMINS [Concomitant]
     Active Substance: VITAMINS
  4. SEROQUIEL [Concomitant]
  5. CLONAZEPAM. [Concomitant]
     Active Substance: CLONAZEPAM
  6. DOXEPEN [Concomitant]
  7. LEVAQUIN [Concomitant]
     Active Substance: LEVOFLOXACIN
  8. DOXYCYCLINE. [Concomitant]
     Active Substance: DOXYCYCLINE
  9. GABAPENTIN. [Concomitant]
     Active Substance: GABAPENTIN

REACTIONS (4)
  - Pruritus [None]
  - Pain [None]
  - Unevaluable event [None]
  - Rash generalised [None]

NARRATIVE: CASE EVENT DATE: 20140520
